FAERS Safety Report 8948111 (Version 1)
Quarter: 2012Q4

REPORT INFORMATION
  Report Type: 
  Country: NL (occurrence: NL)
  Receive Date: 20121204
  Receipt Date: 20121204
  Transmission Date: 20130627
  Serious: Yes (Life-Threatening, Congenital Anomaly)
  Sender: FDA-Public Use
  Company Number: NL-GLAXOSMITHKLINE-B0849406A

PATIENT
  Age: 0 Year

DRUGS (1)
  1. LAMICTAL [Suspect]
     Indication: EPILEPSY
     Dosage: 250MG Twice per day
     Route: 064

REACTIONS (2)
  - Anomalous pulmonary venous connection [Recovered/Resolved with Sequelae]
  - Foetal exposure during pregnancy [Unknown]
